FAERS Safety Report 24313629 (Version 1)
Quarter: 2024Q3

REPORT INFORMATION
  Report Type: Spontaneous
  Country: GR (occurrence: GR)
  Receive Date: 20240912
  Receipt Date: 20240912
  Transmission Date: 20241016
  Serious: Yes (Other)
  Sender: PFIZER
  Company Number: GR-PFIZER INC-PV202400119325

PATIENT
  Age: 57 Year
  Sex: Male

DRUGS (2)
  1. PENTOSTATIN [Suspect]
     Active Substance: PENTOSTATIN
     Indication: Hairy cell leukaemia
     Dosage: EVERY 15 DAYS FOR A TOTAL EIGHT CYCLES
  2. GRANULOCYTE COLONY-STIMULATING FACTOR NOS [Concomitant]
     Active Substance: GRANULOCYTE COLONY-STIMULATING FACTOR NOS
     Dosage: UNK

REACTIONS (3)
  - Second primary malignancy [Unknown]
  - Neuroendocrine carcinoma of the skin [Unknown]
  - T-lymphocyte count decreased [Unknown]
